FAERS Safety Report 6752532-9 (Version None)
Quarter: 2010Q2

REPORT INFORMATION
  Report Type: 
  Country: None (occurrence: None)
  Receive Date: 20100602
  Receipt Date: 20100525
  Transmission Date: 20101027
  Serious: Yes (Other)
  Sender: FDA-Public Use
  Company Number: BR-GENENTECH-302311

PATIENT
  Sex: Female
  Weight: 78 kg

DRUGS (1)
  1. RITUXIMAB [Suspect]
     Indication: RHEUMATOID ARTHRITIS
     Dosage: UNK
     Route: 065
     Dates: end: 20100107

REACTIONS (5)
  - ERYTHEMA [None]
  - HYPOTHYROIDISM [None]
  - PREMATURE MENOPAUSE [None]
  - PRURITUS [None]
  - WEIGHT INCREASED [None]
